FAERS Safety Report 7024470-8 (Version None)
Quarter: 2010Q4

REPORT INFORMATION
  Report Type: 
  Country: None (occurrence: None)
  Receive Date: 20101001
  Receipt Date: 20100929
  Transmission Date: 20110411
  Serious: Yes (Death)
  Sender: FDA-Public Use
  Company Number: A0776215A

PATIENT
  Age: 53 Year
  Sex: Female
  Weight: 68.2 kg

DRUGS (6)
  1. PAXIL CR [Suspect]
     Indication: PANIC ATTACK
     Dosage: 25MG PER DAY
     Route: 048
     Dates: start: 20060713, end: 20060101
  2. SOMA [Concomitant]
     Dates: end: 20060601
  3. XANAX [Concomitant]
  4. VICODIN [Concomitant]
  5. PREMARIN [Concomitant]
  6. CLARITIN [Concomitant]

REACTIONS (1)
  - COMPLETED SUICIDE [None]
